FAERS Safety Report 8914713 (Version 2)
Quarter: 2012Q4

REPORT INFORMATION
  Report Type: 
  Country: JP (occurrence: JP)
  Receive Date: 20121119
  Receipt Date: 20121207
  Transmission Date: 20130627
  Serious: No
  Sender: FDA-Public Use
  Company Number: JP-009507513-1211JPN006698

PATIENT
  Age: 41 Year
  Sex: Female

DRUGS (1)
  1. RIZATRIPTAN BENZOATE [Suspect]
     Indication: MIGRAINE
     Dosage: 10 mg, qd
     Route: 048
     Dates: start: 20121031

REACTIONS (1)
  - Altered state of consciousness [Recovered/Resolved]
